FAERS Safety Report 10161714 (Version 1)
Quarter: 2014Q2

REPORT INFORMATION
  Report Type: Spontaneous
  Country: US (occurrence: None)
  Receive Date: 20140508
  Receipt Date: 20140508
  Transmission Date: 20141212
  Serious: Yes (Hospitalization, Other)
  Sender: FDA-Public Use
  Company Number: None

PATIENT
  Age: 83 Year
  Sex: Female
  Weight: 47.63 kg

DRUGS (19)
  1. XARELTO [Suspect]
     Indication: ANTICOAGULANT THERAPY
     Dosage: 20MG?1 PILL?DAILY AT SUPPER?BY MOUTH
     Route: 048
     Dates: start: 20140225, end: 20140326
  2. TRAZADONE [Concomitant]
  3. TRAMADOL [Concomitant]
  4. FUROSEMIDE [Concomitant]
  5. KLOR-CON [Concomitant]
  6. OXYGEN [Concomitant]
  7. COMPRESSION BOOTS [Concomitant]
  8. PREMARIN [Concomitant]
  9. AMIODARONE [Concomitant]
  10. LEXAPRO [Concomitant]
  11. LEVOTHYROXINE [Concomitant]
  12. ASPIRIN [Concomitant]
  13. PRESERVISION CENTRUM SILVER [Concomitant]
  14. FERROUS [Concomitant]
  15. GLOCONATE [Concomitant]
  16. LISINOPRIL [Concomitant]
  17. SPIRIVA [Concomitant]
  18. SYMBICORT [Concomitant]
  19. PRO AIR [Concomitant]

REACTIONS (5)
  - Contusion [None]
  - Bleeding time prolonged [None]
  - Haemorrhage [None]
  - Abdominal pain [None]
  - Intra-abdominal haematoma [None]
